FAERS Safety Report 13643125 (Version 1)
Quarter: 2017Q2

REPORT INFORMATION
  Report Type: Spontaneous
  Country: US (occurrence: US)
  Receive Date: 20170612
  Receipt Date: 20170612
  Transmission Date: 20170830
  Serious: No
  Sender: FDA-Public Use
  Company Number: GXBR2017US001577

PATIENT
  Sex: Female

DRUGS (1)
  1. TRIAMTERENE/HCTZ CAPSULES USP [Suspect]
     Active Substance: HYDROCHLOROTHIAZIDE\TRIAMTERENE
     Indication: PRODUCT USED FOR UNKNOWN INDICATION
     Dosage: 37.5 MG / 25 MG, QD
     Route: 048

REACTIONS (1)
  - Urticaria [Not Recovered/Not Resolved]
